FAERS Safety Report 5267970-3 (Version None)
Quarter: 2007Q1

REPORT INFORMATION
  Report Type: 
  Country: None (occurrence: None)
  Receive Date: 20061211
  Receipt Date: 20060215
  Transmission Date: 20070707
  Serious: Yes (Other)
  Sender: FDA-Public Use
  Company Number: ENTC2006-0048

PATIENT
  Sex: Male

DRUGS (2)
  1. STALEVO 50 [Suspect]
     Dosage: 100 MG
  2. TOPROL-XL [Concomitant]

REACTIONS (1)
  - BLOOD PRESSURE INCREASED [None]
